FAERS Safety Report 6216128-X (Version None)
Quarter: 2009Q2

REPORT INFORMATION
  Report Type: 
  Country: None (occurrence: None)
  Receive Date: 20090605
  Receipt Date: 20090528
  Transmission Date: 20091009
  Serious: Yes (Death, Hospitalization)
  Sender: FDA-Public Use
  Company Number: AT-CELGENEUS-009-21880-09031315

PATIENT
  Sex: Male
  Weight: 62 kg

DRUGS (8)
  1. REVLIMID [Suspect]
     Route: 048
     Dates: start: 20081205, end: 20090222
  2. REVLIMID [Suspect]
     Route: 048
     Dates: start: 20090302
  3. DEXAMETHASONE [Concomitant]
     Indication: DRUG USE FOR UNKNOWN INDICATION
     Route: 065
  4. T-ASS [Concomitant]
     Indication: DRUG USE FOR UNKNOWN INDICATION
     Route: 065
  5. AQUAPHORIL [Concomitant]
     Indication: DRUG USE FOR UNKNOWN INDICATION
     Route: 065
  6. SPIRONO [Concomitant]
     Indication: DRUG USE FOR UNKNOWN INDICATION
     Route: 065
  7. PANTOPRAZOLE SODIUM [Concomitant]
     Indication: DRUG USE FOR UNKNOWN INDICATION
     Route: 065
  8. KALIORAL [Concomitant]
     Indication: DRUG USE FOR UNKNOWN INDICATION
     Dosage: DEPENDING ON POTASSIUM LEVEL
     Route: 065

REACTIONS (3)
  - AMYLOIDOSIS [None]
  - CARDIAC FAILURE [None]
  - CONDUCTION DISORDER [None]
